FAERS Safety Report 8819388 (Version 1)
Quarter: 2012Q4

REPORT INFORMATION
  Report Type: Spontaneous
  Country: US (occurrence: None)
  Receive Date: 20121004
  Receipt Date: 20121004
  Transmission Date: 20130627
  Serious: No
  Sender: FDA-Public Use
  Company Number: None

PATIENT
  Age: 63 Year
  Sex: Female
  Weight: 56.25 kg

DRUGS (5)
  1. VIIBRYD 40MG FOREST PARMACEUTICALS [Suspect]
     Indication: MAJOR DEPRESSION
     Dosage: 40mg daily po
     Route: 048
     Dates: start: 20120811, end: 20120922
  2. SYNTHROID [Concomitant]
  3. OMEPRAZOLE [Concomitant]
  4. CALTRATE [Concomitant]
  5. LIPITOR [Concomitant]

REACTIONS (2)
  - Hallucination [None]
  - Musculoskeletal stiffness [None]
